FAERS Safety Report 6302003-9 (Version None)
Quarter: 2009Q3

REPORT INFORMATION
  Report Type: 
  Country: None (occurrence: None)
  Receive Date: 20090807
  Receipt Date: 20090728
  Transmission Date: 20100115
  Serious: Yes (Hospitalization)
  Sender: FDA-Public Use
  Company Number: SE-PFIZER INC-2009246534

PATIENT
  Age: 23 Year

DRUGS (2)
  1. LYRICA [Suspect]
     Dosage: UNK
  2. ALCOHOL [Suspect]

REACTIONS (2)
  - ALCOHOL POISONING [None]
  - OVERDOSE [None]
